FAERS Safety Report 22211542 (Version 1)
Quarter: 2023Q2

REPORT INFORMATION
  Report Type: Spontaneous
  Country: US (occurrence: None)
  Receive Date: 20230413
  Receipt Date: 20230413
  Transmission Date: 20230722
  Serious: Yes (Other)
  Sender: FDA-Public Use
  Company Number: None

PATIENT
  Age: 25 Year
  Sex: Female
  Weight: 90 kg

DRUGS (5)
  1. VYVANSE [Suspect]
     Active Substance: LISDEXAMFETAMINE DIMESYLATE
     Indication: Attention deficit hyperactivity disorder
     Dosage: 1 CAPSULE DAILY ORAL
     Route: 048
     Dates: start: 20230212, end: 20230228
  2. Buspirone hcl 20mgs 2x a day [Concomitant]
  3. Vyvanse 60mgs 1x daily [Concomitant]
  4. Topamax 75 mg 2x daily [Concomitant]
  5. Hydroxyzine as needed [Concomitant]

REACTIONS (3)
  - Drug ineffective [None]
  - Product physical issue [None]
  - Mental disorder [None]

NARRATIVE: CASE EVENT DATE: 20230212
